FAERS Safety Report 19073673 (Version 2)
Quarter: 2021Q2

REPORT INFORMATION
  Report Type: Spontaneous
  Country: JP (occurrence: JP)
  Receive Date: 20210330
  Receipt Date: 20210529
  Transmission Date: 20210717
  Serious: Yes (Death, Other)
  Sender: FDA-Public Use
  Company Number: JP-ROCHE-2792916

PATIENT
  Age: 65 Year
  Sex: Male
  Weight: 58 kg

DRUGS (10)
  1. OLMESARTAN [OLMESARTAN MEDOXOMIL] [Concomitant]
     Active Substance: OLMESARTAN MEDOXOMIL
     Dosage: DOSAGE IS UNCERTAIN.
     Route: 065
     Dates: start: 20210302, end: 20210315
  2. CARBOPLATIN. [Suspect]
     Active Substance: CARBOPLATIN
     Indication: NON-SMALL CELL LUNG CANCER
     Dosage: DOSAGE IS UNCERTAIN.
     Route: 041
     Dates: start: 20210302, end: 202103
  3. TECENTRIQ [Suspect]
     Active Substance: ATEZOLIZUMAB
     Indication: NON-SMALL CELL LUNG CANCER
     Route: 041
     Dates: start: 20210302, end: 202103
  4. ABRAXANE [Suspect]
     Active Substance: PACLITAXEL
     Indication: NON-SMALL CELL LUNG CANCER
     Dosage: DOSAGE IS UNCERTAIN.
     Route: 041
     Dates: start: 20210302, end: 202103
  5. RESTAMIN [Concomitant]
     Active Substance: DIPHENHYDRAMINE
     Dosage: DOSAGE IS UNCERTAIN.
     Route: 065
     Dates: start: 20210302, end: 20210302
  6. NIFEDIPINE. [Concomitant]
     Active Substance: NIFEDIPINE
     Dosage: DOSAGE IS UNCERTAIN.
     Route: 065
     Dates: end: 20210315
  7. ALOXI [Concomitant]
     Active Substance: PALONOSETRON HYDROCHLORIDE
     Dosage: DOSAGE IS UNCERTAIN.
     Route: 065
     Dates: start: 20210302, end: 20210302
  8. DEXART [Concomitant]
     Active Substance: DEXAMETHASONE SODIUM PHOSPHATE
     Dosage: DOSAGE IS UNCERTAIN.
     Route: 065
     Dates: start: 20210302, end: 20210302
  9. APREPITANT. [Concomitant]
     Active Substance: APREPITANT
     Dosage: DOSAGE IS UNCERTAIN.
     Route: 065
     Dates: start: 20210302, end: 20210304
  10. RABEPRAZOLE SODIUM. [Concomitant]
     Active Substance: RABEPRAZOLE SODIUM
     Dosage: DOSAGE IS UNCERTAIN.
     Route: 065
     Dates: start: 20210311, end: 20210315

REACTIONS (12)
  - Nausea [Unknown]
  - Hypotension [Fatal]
  - Haemophagocytic lymphohistiocytosis [Unknown]
  - Pyrexia [Unknown]
  - Renal impairment [Unknown]
  - Myocarditis [Fatal]
  - Hyponatraemia [Fatal]
  - Stomatitis [Unknown]
  - Decreased appetite [Recovering/Resolving]
  - Platelet count decreased [Fatal]
  - Drug eruption [Recovering/Resolving]
  - Adrenal disorder [Unknown]

NARRATIVE: CASE EVENT DATE: 20210305
